FAERS Safety Report 23874359 (Version 1)
Quarter: 2024Q2

REPORT INFORMATION
  Report Type: Report from Study
  Country: MX (occurrence: MX)
  Receive Date: 20240520
  Receipt Date: 20240520
  Transmission Date: 20240716
  Serious: Yes (Death, Hospitalization, Other)
  Sender: FDA-Public Use
  Company Number: MX-002147023-NVSC2024MX078315

PATIENT
  Age: 94 Year
  Sex: Female
  Weight: 50 kg

DRUGS (2)
  1. EXFORGE HCT [Suspect]
     Active Substance: AMLODIPINE BESYLATE\HYDROCHLOROTHIAZIDE\VALSARTAN
     Indication: Hypertension
     Dosage: 1 DOSAGE FORM OF 10/320/2 5 MG, QD
     Route: 048
     Dates: start: 20230906, end: 20231001
  2. EXFORGE [Suspect]
     Active Substance: AMLODIPINE BESYLATE\VALSARTAN
     Indication: Hypertension
     Dosage: 1 DOSAGE FORM, QD
     Route: 048
     Dates: start: 20231012, end: 20240307

REACTIONS (7)
  - Hypertensive cardiomyopathy [Fatal]
  - Cardiac failure [Fatal]
  - Acute myocardial infarction [Fatal]
  - Hip fracture [Recovered/Resolved with Sequelae]
  - Shoulder fracture [Recovered/Resolved with Sequelae]
  - Fall [Recovered/Resolved with Sequelae]
  - Drug ineffective [Unknown]

NARRATIVE: CASE EVENT DATE: 20230930
